FAERS Safety Report 23205753 (Version 1)
Quarter: 2023Q4

REPORT INFORMATION
  Report Type: Spontaneous
  Country: CN (occurrence: CN)
  Receive Date: 20231120
  Receipt Date: 20231120
  Transmission Date: 20240110
  Serious: Yes (Other)
  Sender: FDA-Public Use
  Company Number: CN-JNJFOC-20231128040

PATIENT

DRUGS (3)
  1. ACETAMINOPHEN [Suspect]
     Active Substance: ACETAMINOPHEN
     Indication: Patent ductus arteriosus
     Route: 065
  2. CHILDRENS MOTRIN [Suspect]
     Active Substance: IBUPROFEN
     Indication: Patent ductus arteriosus
     Route: 065
  3. CHILDRENS MOTRIN [Suspect]
     Active Substance: IBUPROFEN
     Route: 065

REACTIONS (11)
  - Retinopathy of prematurity [Unknown]
  - Necrotising colitis [Unknown]
  - Intraventricular haemorrhage [Unknown]
  - Pulmonary haemorrhage [Unknown]
  - Bronchopulmonary dysplasia [Unknown]
  - Off label use [Unknown]
  - Upper gastrointestinal haemorrhage [Unknown]
  - Oliguria [Unknown]
  - Cystatin C increased [Unknown]
  - Urine output decreased [Unknown]
  - Occult blood positive [Unknown]
